FAERS Safety Report 6475833-0 (Version None)
Quarter: 2009Q4

REPORT INFORMATION
  Report Type: 
  Country: None (occurrence: None)
  Receive Date: 20091204
  Receipt Date: 20090127
  Transmission Date: 20100525
  Serious: No
  Sender: FDA-Public Use
  Company Number: US-AMGEN-KDL327079

PATIENT
  Sex: Female

DRUGS (4)
  1. ENBREL [Suspect]
     Indication: PSORIASIS
     Route: 058
  2. UNSPECIFIED TOPICAL PRODUCT [Concomitant]
  3. LISINOPRIL AND HYDROCHLOROTHIAZIDE [Concomitant]
  4. TRAMADOL HYDROCHLORIDE [Concomitant]

REACTIONS (5)
  - DYSPNOEA [None]
  - INFLUENZA [None]
  - KOEBNER PHENOMENON [None]
  - PSORIASIS [None]
  - TUBERCULIN TEST POSITIVE [None]
